FAERS Safety Report 16318440 (Version 1)
Quarter: 2019Q2

REPORT INFORMATION
  Report Type: Spontaneous
  Country: FR (occurrence: FR)
  Receive Date: 20190516
  Receipt Date: 20190516
  Transmission Date: 20190711
  Serious: Yes (Other)
  Sender: FDA-Public Use
  Company Number: FR-ACCORD-127573

PATIENT
  Age: 57 Year
  Sex: Male
  Weight: 75 kg

DRUGS (4)
  1. OXALIPLATIN. [Suspect]
     Active Substance: OXALIPLATIN
     Indication: PANCREATIC NEUROENDOCRINE TUMOUR
     Dates: start: 20170210, end: 20180723
  2. FLUOROURACIL. [Suspect]
     Active Substance: FLUOROURACIL
     Indication: PANCREATIC NEUROENDOCRINE TUMOUR
     Dosage: ALSO TAKEN FROM 24-JUL-2017 TO 06-OCT-2017
     Dates: start: 20170210, end: 20170723
  3. FOLINIC ACID [Suspect]
     Active Substance: LEUCOVORIN
     Indication: PANCREATIC NEUROENDOCRINE TUMOUR
     Dosage: ALSO TAKEN FROM 24-JUL-2017 TO 06-OCT-2017
     Dates: start: 20170210, end: 20170723
  4. XELODA [Suspect]
     Active Substance: CAPECITABINE
     Indication: PANCREATIC NEUROENDOCRINE TUMOUR
     Dosage: UNK
     Dates: start: 20171026

REACTIONS (3)
  - Oedema peripheral [Not Recovered/Not Resolved]
  - Off label use [Unknown]
  - Neuropathy peripheral [Not Recovered/Not Resolved]

NARRATIVE: CASE EVENT DATE: 20170327
